FAERS Safety Report 7809008-7 (Version None)
Quarter: 2011Q4

REPORT INFORMATION
  Report Type: 
  Country: None (occurrence: None)
  Receive Date: 20111012
  Receipt Date: 20111012
  Transmission Date: 20120403
  Serious: No
  Sender: FDA-Public Use
  Company Number: None

PATIENT
  Age: 53 Year
  Sex: Female
  Weight: 70.306 kg

DRUGS (2)
  1. MARCAINE HYDROCHLORIDE W/ EPINEPHRINE [Suspect]
     Indication: TENDON OPERATION
     Dosage: 10 ML
     Route: 058
     Dates: start: 20110926, end: 20110926
  2. KENALOG AND LIDOCAINE [Concomitant]

REACTIONS (3)
  - HYPOAESTHESIA [None]
  - BLISTER [None]
  - SKIN DISCOLOURATION [None]
